FAERS Safety Report 9153669 (Version 1)
Quarter: 2013Q1

REPORT INFORMATION
  Report Type: Spontaneous
  Country: US (occurrence: None)
  Receive Date: 20130306
  Receipt Date: 20130306
  Transmission Date: 20140127
  Serious: Yes (Other)
  Sender: FDA-Public Use
  Company Number: None

PATIENT
  Age: 63 Year
  Sex: Female
  Weight: 81.65 kg

DRUGS (1)
  1. CEFDINIR [Suspect]
     Indication: SINUSITIS
     Dosage: 2 CAPSULES DAILY FOR 10 DAYS
     Dates: start: 20130202, end: 20130205

REACTIONS (10)
  - Headache [None]
  - Dyspnoea [None]
  - Confusional state [None]
  - Dysarthria [None]
  - Eye irritation [None]
  - Vision blurred [None]
  - Myalgia [None]
  - Dizziness [None]
  - Vertigo [None]
  - Vision blurred [None]
